FAERS Safety Report 6272818-4 (Version None)
Quarter: 2009Q3

REPORT INFORMATION
  Report Type: 
  Country: None (occurrence: None)
  Receive Date: 20090717
  Receipt Date: 20090702
  Transmission Date: 20100115
  Serious: Yes (Other)
  Sender: FDA-Public Use
  Company Number: JP-GENENTECH-285905

PATIENT
  Age: 55 Year
  Sex: Female

DRUGS (1)
  1. XOLAIR [Suspect]
     Indication: ASTHMA
     Dosage: 300 MG, UNK
     Route: 058
     Dates: start: 20090618

REACTIONS (3)
  - ASTHMA [None]
  - BLOOD PRESSURE INCREASED [None]
  - ERYTHEMA [None]
